FAERS Safety Report 7120683-5 (Version None)
Quarter: 2010Q4

REPORT INFORMATION
  Report Type: 
  Country: None (occurrence: None)
  Receive Date: 20101119
  Receipt Date: 20101119
  Transmission Date: 20110411
  Serious: No
  Sender: FDA-Public Use
  Company Number: None

PATIENT
  Sex: Female
  Weight: 99.7913 kg

DRUGS (1)
  1. TOPIRAMATE [Suspect]
     Indication: BIPOLAR DISORDER
     Dosage: 2X DAILY

REACTIONS (1)
  - HYPERSENSITIVITY [None]
